FAERS Safety Report 9457498 (Version 1)
Quarter: 2013Q3

REPORT INFORMATION
  Report Type: Spontaneous
  Country: CA (occurrence: CA)
  Receive Date: 20130814
  Receipt Date: 20130814
  Transmission Date: 20140515
  Serious: Yes (Death)
  Sender: FDA-Public Use
  Company Number: CA-ROCHE-1261486

PATIENT
  Sex: Male

DRUGS (5)
  1. AVASTIN [Suspect]
     Indication: MALIGNANT GLIOMA
     Route: 042
  2. DECADRON [Concomitant]
     Route: 065
  3. QUETIAPINE [Concomitant]
  4. RANITIDINE [Concomitant]
  5. ACETYLSALICYLIC ACID (ASA) [Concomitant]
     Route: 065

REACTIONS (1)
  - Death [Fatal]
